FAERS Safety Report 10094355 (Version 1)
Quarter: 2014Q2

REPORT INFORMATION
  Report Type: Spontaneous
  Country: GR (occurrence: None)
  Receive Date: 20140418
  Receipt Date: 20140418
  Transmission Date: 20141212
  Serious: Yes (Death)
  Sender: FDA-Public Use
  Company Number: NGX_02224_2014

PATIENT
  Sex: Male

DRUGS (1)
  1. QUTENZA (CAPSAICIN) PATCH (179 MG, 179 MG) [Suspect]
     Indication: NEUROPATHY PERIPHERAL
     Dosage: (1 DF, [PATCH] TOPICAL),
     Route: 061
     Dates: start: 20131223, end: 20131223

REACTIONS (1)
  - Metastatic neoplasm [None]
